FAERS Safety Report 7650781-9 (Version None)
Quarter: 2011Q3

REPORT INFORMATION
  Report Type: 
  Country: None (occurrence: None)
  Receive Date: 20110727
  Receipt Date: 20110712
  Transmission Date: 20111222
  Serious: Yes (Hospitalization)
  Sender: FDA-Public Use
  Company Number: DSA_47204_2011

PATIENT
  Age: 78 Year
  Sex: Female
  Weight: 42 kg

DRUGS (10)
  1. DILTIAZEM HYDROCHLORIDE [Suspect]
     Indication: HYPERTENSION
     Dosage: ( DF ORAL)
     Route: 048
  2. GASTER /0070601/) [Concomitant]
  3. ALOSENN /00476901/) [Concomitant]
  4. MUCOSTA [Concomitant]
  5. SIGMART [Concomitant]
  6. ZOLPIDEM [Concomitant]
  7. ATORVASTATIN [Suspect]
     Indication: PRODUCT USED FOR UNKNOWN INDICATION
     Dosage: (DF)
  8. CLARITHROMYCIN [Suspect]
     Dosage: (DF ORAL)
     Route: 048
  9. CANDESARTAN CILEXETIL [Concomitant]
  10. ASPIRIN [Concomitant]

REACTIONS (17)
  - FEELING ABNORMAL [None]
  - NODAL RHYTHM [None]
  - CEREBRAL ATROPHY [None]
  - DRUG INTERACTION [None]
  - SELF-MEDICATION [None]
  - LOSS OF CONSCIOUSNESS [None]
  - HAEMOGLOBIN DECREASED [None]
  - OROPHARYNGEAL PAIN [None]
  - HAEMATOCRIT DECREASED [None]
  - CARDIAC MURMUR [None]
  - HYPOTENSION [None]
  - ADAMS-STOKES SYNDROME [None]
  - ATRIOVENTRICULAR BLOCK COMPLETE [None]
  - FALL [None]
  - PYREXIA [None]
  - DIZZINESS [None]
  - VOMITING [None]
